FAERS Safety Report 16919368 (Version 3)
Quarter: 2019Q4

REPORT INFORMATION
  Report Type: Spontaneous
  Country: US (occurrence: US)
  Receive Date: 20191015
  Receipt Date: 20191202
  Transmission Date: 20200122
  Serious: No
  Sender: FDA-Public Use
  Company Number: US-PFIZER INC-2019444089

PATIENT
  Age: 52 Year
  Sex: Female
  Weight: 84.35 kg

DRUGS (5)
  1. DEMEROL [Suspect]
     Active Substance: MEPERIDINE HYDROCHLORIDE
     Indication: MIGRAINE
     Dosage: 50 MG, AS NEEDED (6 HOURS AS NEEDED)
  2. NORCO [Concomitant]
     Active Substance: ACETAMINOPHEN\HYDROCODONE BITARTRATE
     Dosage: 10 MG, 4X/DAY
  3. VALIUM [Concomitant]
     Active Substance: DIAZEPAM
     Dosage: 10 MG, 3X/DAY
  4. ZANAFLEX [Concomitant]
     Active Substance: TIZANIDINE HYDROCHLORIDE
     Dosage: UNK, 3X/DAY
  5. PROMETHAZINE [Concomitant]
     Active Substance: PROMETHAZINE HYDROCHLORIDE
     Indication: MIGRAINE
     Dosage: 25 MG, AS NEEDED (TAKE WEEKLY)

REACTIONS (2)
  - Memory impairment [Not Recovered/Not Resolved]
  - Thirst [Recovered/Resolved]
